FAERS Safety Report 4474447-1 (Version None)
Quarter: 2004Q4

REPORT INFORMATION
  Report Type: 
  Country: None (occurrence: None)
  Receive Date: 20041012
  Receipt Date: 20040927
  Transmission Date: 20050328
  Serious: Yes (Hospitalization)
  Sender: FDA-Public Use
  Company Number: 2004-SW-00313SW

PATIENT
  Age: 66 Year
  Sex: Male

DRUGS (11)
  1. SIFROL TAB. 1.1 MG (PRAMIPEXOLE DIHYDROCHLORIDE ) (TA) (PRAMIPEXOLE) [Suspect]
     Indication: PARKINSON'S DISEASE
     Dosage: 3.3 MG (1.1 MG)
  2. MADOPARK (MADOPAR) (TA) [Suspect]
     Indication: PARKINSON'S DISEASE
     Dosage: 6 ANZ;( LONG- TERM TREATMENT)
  3. MADOPARK QUICK (MADOPAR) (TA) [Suspect]
     Indication: PARKINSON'S DISEASE
     Dosage: 3 ANZ, PO; (LONG-TERM TREATMENT)
     Route: 048
  4. TASMAR (TOLCAPONE) (DR) [Suspect]
     Indication: PARKINSON'S DISEASE
     Dosage: 100 MG (100 MG) PO; (LONG-TERM TREATMENT)
     Route: 048
     Dates: start: 20031001
  5. EFFEXOR (VENLAFAXINE HYDROCHLORIDE) (TA) [Concomitant]
  6. EGAZIL DURETTER (HYOSCYAMINE SULFATE) (TAD) [Concomitant]
  7. ORSTANORM (DIHYDROGERGOTAMINE MESILATE) (TA) [Concomitant]
  8. BETOLVEX (CYANOCOBALAMIN-TANNIN COMPLEX) (TA) [Concomitant]
  9. CLARITYN (LORATADINE) (TA) [Concomitant]
  10. TROMBYL (ACETYLSALICYLIC ACID) (TA) [Concomitant]
  11. DETRUSITOL (TOLTERODINE L-TARTRATE) (DR) [Concomitant]
     Dosage: LONG-TERM TREATMENT

REACTIONS (5)
  - DYSPNOEA EXERTIONAL [None]
  - FATIGUE [None]
  - PLEURAL FIBROSIS [None]
  - PULMONARY FIBROSIS [None]
  - WEIGHT DECREASED [None]
